FAERS Safety Report 7186846-8 (Version None)
Quarter: 2010Q4

REPORT INFORMATION
  Report Type: 
  Country: None (occurrence: None)
  Receive Date: 20101222
  Receipt Date: 20101216
  Transmission Date: 20110411
  Serious: Yes (Hospitalization)
  Sender: FDA-Public Use
  Company Number: B0687579A

PATIENT
  Sex: Female

DRUGS (10)
  1. ARIXTRA [Suspect]
     Dosage: 7.5MG PER DAY
     Route: 058
     Dates: start: 20100911, end: 20101121
  2. LASIX [Concomitant]
     Route: 065
  3. DIFFU K [Concomitant]
     Route: 065
  4. SEROPLEX [Concomitant]
     Route: 065
  5. EQUANIL [Concomitant]
     Route: 065
  6. NEXIUM [Concomitant]
     Route: 065
  7. EXEMESTANE [Concomitant]
     Route: 065
  8. SPECIAFOLDINE [Concomitant]
     Route: 065
  9. MEMANTINE [Concomitant]
     Route: 065
  10. FORLAX [Concomitant]
     Route: 065

REACTIONS (5)
  - CARDIAC FAILURE [None]
  - EPISTAXIS [None]
  - INCORRECT DRUG ADMINISTRATION DURATION [None]
  - MALAISE [None]
  - OXYGEN SATURATION DECREASED [None]
